FAERS Safety Report 5363061-1 (Version None)
Quarter: 2007Q2

REPORT INFORMATION
  Report Type: 
  Country: None (occurrence: None)
  Receive Date: 20070615
  Receipt Date: 20070605
  Transmission Date: 20071010
  Serious: Yes (Disabling, Other)
  Sender: FDA-Public Use
  Company Number: 2006JP005479

PATIENT
  Age: 16 Year
  Sex: Female
  Weight: 64.7 kg

DRUGS (10)
  1. PROGRAF [Suspect]
     Indication: JUVENILE ARTHRITIS
     Dosage: 3 MG, UID/QD, ORAL
     Route: 048
     Dates: start: 20061117, end: 20061213
  2. NEORAL [Concomitant]
  3. MUCOSTA (REBAMIPIDE) FORMULATION UNKNOWN [Concomitant]
  4. MEVALOTIN (PRAVASTATIN SODIUM) FORMULATION UNKNOWN [Concomitant]
  5. ONEALFA (ALFACALCIDOL) FORMULATION UNKNOWN [Concomitant]
  6. PREDONINE (PREDNISOLONE) FORMULATION UNKNOWN [Concomitant]
  7. TAKEPRON (LANSOPRAZOLE) FORMULATION UNKNOWN [Concomitant]
  8. BAKTAR (SULFAMETHOXAZOLE, TIRIMETHOPRIM) TABLET [Concomitant]
  9. EBASTEL (EBASTINE) FORMULATION UNKNOWN [Concomitant]
  10. ROHYPNOL (FLUNITRAZEPAM) FORMULATION UNKNOWN [Concomitant]

REACTIONS (2)
  - NEURALGIA [None]
  - PAIN [None]
